APPROVED DRUG PRODUCT: PROPRANOLOL HYDROCHLORIDE AND HYDROCHLOROTHIAZIDE
Active Ingredient: HYDROCHLOROTHIAZIDE; PROPRANOLOL HYDROCHLORIDE
Strength: 25MG;40MG
Dosage Form/Route: TABLET;ORAL
Application: A071552 | Product #001
Applicant: IVAX PHARMACEUTICALS INC SUB TEVA PHARMACEUTICALS USA
Approved: Dec 1, 1988 | RLD: No | RS: No | Type: DISCN